FAERS Safety Report 9843786 (Version 1)
Quarter: 2013Q4

REPORT INFORMATION
  Report Type: Spontaneous
  Country: US (occurrence: None)
  Receive Date: 20131223
  Receipt Date: 20131223
  Transmission Date: 20140711
  Serious: No
  Sender: FDA-Public Use
  Company Number: 1000051650

PATIENT
  Age: 80 Year
  Sex: Female
  Weight: 50 kg

DRUGS (6)
  1. LINZESS (LINACLOTIDE) (145 MICROGRAM, CAPSULES) [Suspect]
     Indication: CONSTIPATION
     Dosage: 145 MCG (145 MCG, 1 IN 1 D), ORAL
     Route: 048
     Dates: start: 201311, end: 201311
  2. LEVODOPA/CARBIDOPA (SINEMET) (SINEMET) [Concomitant]
  3. NORVASC (AMLODIPINE BESILATE (AMLODIPINE BESILATE) [Concomitant]
  4. XANAX (ALPRAZOLAM) (ALPRAZOLAM) [Concomitant]
  5. BABY ASPIRIN (ACETYLSALICYLIC ACID) (ACETYLSALICYLIC ACID) [Concomitant]
  6. VITAMINS NOS (VITAMINS NOS) (VITAMINS NIOS) [Concomitant]

REACTIONS (5)
  - Diarrhoea [None]
  - Abdominal distension [None]
  - Abdominal pain [None]
  - Feeling jittery [None]
  - Weight decreased [None]
